FAERS Safety Report 6987302-X (Version None)
Quarter: 2010Q3

REPORT INFORMATION
  Report Type: 
  Country: None (occurrence: None)
  Receive Date: 20100916
  Receipt Date: 20100907
  Transmission Date: 20110219
  Serious: Yes (Hospitalization, Other)
  Sender: FDA-Public Use
  Company Number: GR-BAXTER-2010BH023269

PATIENT
  Age: 57 Year
  Sex: Female
  Weight: 78 kg

DRUGS (8)
  1. CYCLOPHOSPHAMIDE [Suspect]
     Indication: BREAST CANCER
     Route: 042
     Dates: start: 20060719, end: 20060818
  2. METHOTREXATE [Suspect]
     Indication: BREAST CANCER
     Route: 042
     Dates: start: 20060719, end: 20060818
  3. FLUOROURACIL [Suspect]
     Indication: BREAST CANCER
     Route: 042
     Dates: start: 20060719, end: 20060818
  4. EPOETIN BETA [Concomitant]
     Indication: ANAEMIA
     Route: 042
     Dates: start: 20060511, end: 20060802
  5. RESOFERON [Concomitant]
     Indication: ANAEMIA
     Route: 048
     Dates: start: 20060511, end: 20060802
  6. ZOFRON [Concomitant]
     Indication: PREMEDICATION
     Route: 042
     Dates: start: 20060511, end: 20060802
  7. PRIMPERAN TAB [Concomitant]
     Indication: PREMEDICATION
     Route: 042
     Dates: start: 20060511, end: 20060802
  8. NEULASTA [Concomitant]
     Indication: NEUTROPENIA
     Route: 058
     Dates: start: 20060511, end: 20060802

REACTIONS (4)
  - DYSPNOEA [None]
  - LEUKOPENIA [None]
  - NEUTROPENIA [None]
  - PAIN [None]
